FAERS Safety Report 25836480 (Version 1)
Quarter: 2025Q3

REPORT INFORMATION
  Report Type: Report from Study
  Country: CA (occurrence: CA)
  Receive Date: 20250923
  Receipt Date: 20250923
  Transmission Date: 20251021
  Serious: Yes (Hospitalization, Other)
  Sender: APOTEX
  Company Number: CA-APOTEX-2025AP002779

PATIENT
  Sex: Male

DRUGS (6)
  1. LENALIDOMIDE [Suspect]
     Active Substance: LENALIDOMIDE
     Indication: Plasma cell myeloma
     Dosage: 1 DOSAGE FORM, Q.O.D., ALTERNATING WITH LENALIDOMIDE 10 MG FOR 3 WEEKS ON AND 1 WEEK OFF
     Route: 048
     Dates: start: 20250206
  2. LENALIDOMIDE [Suspect]
     Active Substance: LENALIDOMIDE
     Dosage: 5 MILLIGRAM, QD FOR 21 DAYS AND 1 WEEK OFF
     Route: 048
     Dates: end: 202507
  3. LENALIDOMIDE [Suspect]
     Active Substance: LENALIDOMIDE
     Dosage: 5 MILLIGRAM, Q.O.D. (ALTERNATING WITH 10MG EVERY OTHER DAY FOR 3 WEEKS)
     Route: 048
     Dates: start: 20250206, end: 2025
  4. LENALIDOMIDE [Suspect]
     Active Substance: LENALIDOMIDE
     Indication: Plasma cell myeloma
     Dosage: 10 MILLIGRAM, Q.O.D., ALTERNATING WITH LENALIDOMIDE 5 MG FOR 3 WEEKS ON AND 1 WEEK OFF
     Route: 048
     Dates: start: 20250206
  5. LENALIDOMIDE [Suspect]
     Active Substance: LENALIDOMIDE
     Dosage: 10 MILLIGRAM, Q.O.D. (ALTERNATING WITH 5 MG EVERY OTHER DAY FOR 3 WEEKS )
     Route: 048
     Dates: end: 2025
  6. POMALIDOMIDE [Suspect]
     Active Substance: POMALIDOMIDE
     Indication: Plasma cell myeloma
     Dosage: 1 DOSAGE FORM, QD FOR 21 DAYS
     Route: 048
     Dates: start: 20250813

REACTIONS (7)
  - Hospitalisation [Unknown]
  - Deep vein thrombosis [Unknown]
  - Myocardial infarction [Recovered/Resolved]
  - COVID-19 [Unknown]
  - Off label use [Unknown]
  - Urticaria [Unknown]
  - Rash [Unknown]

NARRATIVE: CASE EVENT DATE: 20250101
